FAERS Safety Report 24404324 (Version 1)
Quarter: 2024Q4

REPORT INFORMATION
  Report Type: Spontaneous
  Country: US (occurrence: US)
  Receive Date: 20241007
  Receipt Date: 20241007
  Transmission Date: 20250115
  Serious: Yes (Hospitalization, Other)
  Sender: OXFORD PHARMACEUTICALS
  Company Number: US-Oxford Pharmaceuticals, LLC-2162563

PATIENT
  Age: 61 Year
  Sex: Female

DRUGS (1)
  1. SERTRALINE HYDROCHLORIDE [Suspect]
     Active Substance: SERTRALINE HYDROCHLORIDE
     Indication: Product used for unknown indication

REACTIONS (2)
  - Rhabdomyolysis [Recovered/Resolved]
  - Mitochondrial cytopathy [Recovered/Resolved]
